FAERS Safety Report 6068818-X (Version None)
Quarter: 2009Q1

REPORT INFORMATION
  Report Type: 
  Country: None (occurrence: None)
  Receive Date: 20090206
  Receipt Date: 20090204
  Transmission Date: 20090719
  Serious: Yes (Other)
  Sender: FDA-Public Use
  Company Number: DE-AVENTIS-200812036DE

PATIENT
  Age: 67 Year
  Sex: Female

DRUGS (1)
  1. TRENTAL [Suspect]
     Indication: VENOUS OCCLUSION
     Route: 048
     Dates: start: 20080101

REACTIONS (2)
  - CIRCULATORY COLLAPSE [None]
  - TACHYCARDIA [None]
